FAERS Safety Report 5888392-8 (Version None)
Quarter: 2008Q3

REPORT INFORMATION
  Report Type: 
  Country: None (occurrence: None)
  Receive Date: 20080918
  Receipt Date: 20071123
  Transmission Date: 20090109
  Serious: Yes (Disabling)
  Sender: FDA-Public Use
  Company Number: IT-ROCHE-571164

PATIENT
  Sex: Male
  Weight: 73 kg

DRUGS (2)
  1. PEGASYS [Suspect]
     Dosage: DOSE AND STRENGTH REPORTED AS 180.
     Route: 065
     Dates: start: 20070416
  2. RIBAVIRIN [Suspect]
     Dosage: DOSE REPORTED AS 1200.
     Route: 065
     Dates: start: 20070416

REACTIONS (1)
  - HAEMORRHOIDS [None]
